FAERS Safety Report 14197022 (Version 1)
Quarter: 2017Q4

REPORT INFORMATION
  Report Type: Spontaneous
  Country: US (occurrence: US)
  Receive Date: 20171116
  Receipt Date: 20171116
  Transmission Date: 20180321
  Serious: No
  Sender: FDA-Public Use
  Company Number: US-TARO-2016TAR00907

PATIENT
  Sex: Female
  Weight: 77.98 kg

DRUGS (2)
  1. METFORMIN [Concomitant]
     Active Substance: METFORMIN HYDROCHLORIDE
     Dosage: 500 MG, 3X/DAY
  2. TRIAMCINOLONE ACETONIDE DENTAL PASTE USP 0.1% [Suspect]
     Active Substance: TRIAMCINOLONE ACETONIDE
     Indication: ORAL MUCOSAL ERYTHEMA
     Dosage: UNK
     Dates: end: 201610

REACTIONS (2)
  - Abdominal pain upper [Not Recovered/Not Resolved]
  - Diarrhoea [Not Recovered/Not Resolved]
